FAERS Safety Report 13238711 (Version 2)
Quarter: 2017Q1

REPORT INFORMATION
  Report Type: Spontaneous
  Country: JP (occurrence: JP)
  Receive Date: 20170216
  Receipt Date: 20170323
  Transmission Date: 20170428
  Serious: Yes (Other)
  Sender: FDA-Public Use
  Company Number: GXJP2017JP000558

PATIENT
  Age: 39 Year
  Sex: Male

DRUGS (1)
  1. VALSARTAN TAB [Suspect]
     Active Substance: VALSARTAN
     Indication: HYPERTENSION
     Dosage: 40 MG, UNK
     Route: 048

REACTIONS (1)
  - Agranulocytosis [Unknown]
